FAERS Safety Report 5394941-9 (Version None)
Quarter: 2007Q3

REPORT INFORMATION
  Report Type: 
  Country: None (occurrence: None)
  Receive Date: 20070720
  Receipt Date: 20070720
  Transmission Date: 20080115
  Serious: Yes (Death)
  Sender: FDA-Public Use
  Company Number: None

PATIENT
  Age: 24 Year
  Sex: Male
  Weight: 93.7 kg

DRUGS (10)
  1. AMPHOTERICIN B [Suspect]
     Indication: FUNGAL INFECTION
     Dosage: 700 MG DAILY IV DRIP
     Route: 041
     Dates: start: 20070707, end: 20070707
  2. ACYCLOVIR [Concomitant]
  3. APAP TAB [Concomitant]
  4. ESOMEPRAZOLE MAGNESIUM [Concomitant]
  5. DUONEBS [Concomitant]
  6. METHYLPREDNISOLONE [Concomitant]
  7. VANCOMYCIN [Concomitant]
  8. CASPFUNGIN [Concomitant]
  9. DIPHENHYDRAMINE HCL [Concomitant]
  10. PREDNISOLONE [Concomitant]

REACTIONS (4)
  - ARRHYTHMIA [None]
  - DRUG DISPENSING ERROR [None]
  - HYPERKALAEMIA [None]
  - OVERDOSE [None]
